FAERS Safety Report 7045956-6 (Version None)
Quarter: 2010Q4

REPORT INFORMATION
  Report Type: 
  Country: None (occurrence: None)
  Receive Date: 20101014
  Receipt Date: 20101009
  Transmission Date: 20110411
  Serious: Yes (Other)
  Sender: FDA-Public Use
  Company Number: US-CEPHALON-2010005357

PATIENT
  Sex: Female

DRUGS (2)
  1. GABITRIL [Suspect]
     Indication: PETIT MAL EPILEPSY
     Route: 048
     Dates: start: 19970101
  2. GABITRIL [Suspect]
     Route: 048
     Dates: start: 20101010

REACTIONS (10)
  - AURA [None]
  - CONVULSION [None]
  - DEPRESSION [None]
  - DIZZINESS [None]
  - FATIGUE [None]
  - FEELING ABNORMAL [None]
  - INTENTIONAL DRUG MISUSE [None]
  - MALAISE [None]
  - MIGRAINE [None]
  - WEIGHT DECREASED [None]
